FAERS Safety Report 18999883 (Version 1)
Quarter: 2021Q1

REPORT INFORMATION
  Report Type: Spontaneous
  Country: US (occurrence: US)
  Receive Date: 20210312
  Receipt Date: 20210312
  Transmission Date: 20210420
  Serious: No
  Sender: FDA-Public Use
  Company Number: US-GW PHARMA-202103USGW01062

PATIENT

DRUGS (4)
  1. EPIDIOLEX [Suspect]
     Active Substance: CANNABIDIOL
     Dosage: 140 MILLIGRAM, BID
     Route: 048
     Dates: start: 20210306
  2. EPIDIOLEX [Suspect]
     Active Substance: CANNABIDIOL
     Dosage: 110 MILLIGRAM, BID
     Route: 048
     Dates: start: 20210227, end: 20210305
  3. EPIDIOLEX [Suspect]
     Active Substance: CANNABIDIOL
     Indication: EPILEPSY
     Dosage: 35 MILLIGRAM, BID
     Route: 048
     Dates: start: 20210213, end: 20210219
  4. EPIDIOLEX [Suspect]
     Active Substance: CANNABIDIOL
     Dosage: 70 MILLIGRAM, BID
     Route: 048
     Dates: start: 20210220, end: 20210226

REACTIONS (1)
  - Somnolence [Not Recovered/Not Resolved]

NARRATIVE: CASE EVENT DATE: 2021
